FAERS Safety Report 17860907 (Version 1)
Quarter: 2020Q2

REPORT INFORMATION
  Report Type: Spontaneous
  Country: US (occurrence: US)
  Receive Date: 20200604
  Receipt Date: 20200604
  Transmission Date: 20200714
  Serious: Yes (Hospitalization, Other)
  Sender: FDA-Public Use
  Company Number: US-INCYTE CORPORATION-2020IN005049

PATIENT

DRUGS (1)
  1. JAKAFI [Suspect]
     Active Substance: RUXOLITINIB
     Indication: POLYCYTHAEMIA
     Dosage: 10 MILLIGRAM, BID
     Route: 048
     Dates: start: 20180419

REACTIONS (7)
  - Sputum abnormal [Unknown]
  - Fluid overload [Unknown]
  - Oedema [Unknown]
  - Dyspnoea [Unknown]
  - Wheezing [Unknown]
  - Ascites [Unknown]
  - Oxygen saturation abnormal [Unknown]
